FAERS Safety Report 5839522-5 (Version None)
Quarter: 2008Q3

REPORT INFORMATION
  Report Type: 
  Country: None (occurrence: None)
  Receive Date: 20080807
  Receipt Date: 20080729
  Transmission Date: 20090109
  Serious: Yes (Other)
  Sender: FDA-Public Use
  Company Number: 2008007508

PATIENT
  Age: 45 Year
  Sex: Female
  Weight: 56.6996 kg

DRUGS (1)
  1. BENGA ULTRA STRENGTH PATCH (MENTHOL) [Suspect]
     Indication: MUSCLE DISORDER
     Dosage: UNSPECIFIED, TOPICAL
     Route: 061
     Dates: start: 20080313

REACTIONS (5)
  - APPLICATION SITE BURN [None]
  - APPLICATION SITE ERYTHEMA [None]
  - APPLICATION SITE VESICLES [None]
  - PHARMACEUTICAL PRODUCT COMPLAINT [None]
  - SUNBURN [None]
